FAERS Safety Report 8571475-1 (Version None)
Quarter: 2012Q3

REPORT INFORMATION
  Report Type: 
  Country: None (occurrence: None)
  Receive Date: 20120806
  Receipt Date: 20120730
  Transmission Date: 20120928
  Serious: No
  Sender: FDA-Public Use
  Company Number: US-B.I. PHARMACEUTICALS,INC./RIDGEFIELD-2012-BP-03729BP

PATIENT
  Sex: Female

DRUGS (7)
  1. DILTIAZEM [Concomitant]
     Indication: HYPERTENSION
     Dosage: 120 MG
     Route: 048
  2. ENALAPRIL MALEATE [Concomitant]
     Indication: HYPERTENSION
     Dosage: 5 MG
     Route: 048
  3. ENALAPRIL MALEATE [Concomitant]
     Indication: CARDIAC DISORDER
  4. PRADAXA [Suspect]
     Indication: ATRIAL FIBRILLATION
     Dosage: 300 MG
     Route: 048
     Dates: start: 20111003
  5. SIMVASTATIN [Concomitant]
     Indication: BLOOD CHOLESTEROL INCREASED
     Dosage: 20 MG
     Route: 048
  6. DILTIAZEM [Concomitant]
     Indication: CARDIAC DISORDER
  7. PRADAXA [Suspect]
     Indication: CEREBROVASCULAR ACCIDENT PROPHYLAXIS

REACTIONS (3)
  - VISION BLURRED [None]
  - DYSPEPSIA [None]
  - VISUAL IMPAIRMENT [None]
